FAERS Safety Report 16158399 (Version 3)
Quarter: 2020Q2

REPORT INFORMATION
  Report Type: Spontaneous
  Country: US (occurrence: US)
  Receive Date: 20190404
  Receipt Date: 20200406
  Transmission Date: 20200713
  Serious: Yes (Death, Other)
  Sender: FDA-Public Use
  Company Number: US-ASTRAZENECA-2019SE50676

PATIENT
  Sex: Female

DRUGS (49)
  1. METOPROLOL. [Concomitant]
     Active Substance: METOPROLOL
     Indication: BLOOD PRESSURE MEASUREMENT
  2. PROMETHAZINE [Concomitant]
     Active Substance: PROMETHAZINE HYDROCHLORIDE
     Indication: ANTIALLERGIC THERAPY
  3. HUMULIN NOS [Concomitant]
     Active Substance: INSULIN HUMAN
  4. OMEGA-3 ACIDS [Concomitant]
     Active Substance: OMEGA-3 FATTY ACIDS
  5. LUMIGAN [Concomitant]
     Active Substance: BIMATOPROST
  6. DORZOLAMIDE [Concomitant]
     Active Substance: DORZOLAMIDE
  7. PROAIR HFA [Concomitant]
     Active Substance: ALBUTEROL SULFATE
  8. NEXIUM [Suspect]
     Active Substance: ESOMEPRAZOLE MAGNESIUM
     Indication: GASTROOESOPHAGEAL REFLUX DISEASE
     Route: 048
     Dates: start: 2006, end: 2015
  9. FLONASE [Concomitant]
     Active Substance: FLUTICASONE PROPIONATE
  10. NOVOLOG [Concomitant]
     Active Substance: INSULIN ASPART
  11. MAGNESIUM CITRATE. [Concomitant]
     Active Substance: MAGNESIUM CITRATE
  12. PROMETHAZINE [Concomitant]
     Active Substance: PROMETHAZINE HYDROCHLORIDE
  13. BENZONATATE. [Concomitant]
     Active Substance: BENZONATATE
  14. DEXILANT [Suspect]
     Active Substance: DEXLANSOPRAZOLE
     Indication: GASTROOESOPHAGEAL REFLUX DISEASE
     Route: 065
     Dates: start: 2015, end: 2017
  15. ONGLYZA [Concomitant]
     Active Substance: SAXAGLIPTIN HYDROCHLORIDE
  16. CEPHALEXIN. [Concomitant]
     Active Substance: CEPHALEXIN
  17. CLONIDINE. [Concomitant]
     Active Substance: CLONIDINE
  18. OFLOXACIN. [Concomitant]
     Active Substance: OFLOXACIN
  19. ONDANSETRON [Concomitant]
     Active Substance: ONDANSETRON
  20. CARISOPRODOL. [Concomitant]
     Active Substance: CARISOPRODOL
     Indication: MUSCLE RELAXANT THERAPY
  21. TOPROL XL [Concomitant]
     Active Substance: METOPROLOL SUCCINATE
  22. PRAVACHOL [Concomitant]
     Active Substance: PRAVASTATIN SODIUM
  23. BIAXIN [Concomitant]
     Active Substance: CLARITHROMYCIN
  24. ALPRAZOLAM. [Concomitant]
     Active Substance: ALPRAZOLAM
  25. ALPHAGAN P [Concomitant]
     Active Substance: BRIMONIDINE TARTRATE
  26. CIPROFLOXACIN. [Concomitant]
     Active Substance: CIPROFLOXACIN
  27. RANEXA [Concomitant]
     Active Substance: RANOLAZINE
  28. NEXIUM [Suspect]
     Active Substance: ESOMEPRAZOLE MAGNESIUM
     Indication: GASTROOESOPHAGEAL REFLUX DISEASE
     Route: 048
     Dates: start: 2014, end: 2015
  29. FUROSEMIDE. [Concomitant]
     Active Substance: FUROSEMIDE
     Indication: DRUG ABUSE
  30. SENSIPAR [Concomitant]
     Active Substance: CINACALCET HYDROCHLORIDE
  31. PHENAZOPYRIDINE. [Concomitant]
     Active Substance: PHENAZOPYRIDINE
  32. CLOPIDOGREL [Concomitant]
     Active Substance: CLOPIDOGREL BISULFATE
  33. SERTRALINE [Concomitant]
     Active Substance: SERTRALINE HYDROCHLORIDE
  34. LISINOPRIL. [Concomitant]
     Active Substance: LISINOPRIL
     Indication: BLOOD PRESSURE MEASUREMENT
  35. CARVEDILOL. [Concomitant]
     Active Substance: CARVEDILOL
  36. AMIODARONE [Concomitant]
     Active Substance: AMIODARONE
  37. MOVANTIK [Concomitant]
     Active Substance: NALOXEGOL OXALATE
  38. NEXIUM [Suspect]
     Active Substance: ESOMEPRAZOLE MAGNESIUM
     Indication: GASTROOESOPHAGEAL REFLUX DISEASE
     Route: 048
     Dates: start: 2006, end: 2017
  39. TRAZODONE [Concomitant]
     Active Substance: TRAZODONE HYDROCHLORIDE
     Indication: SLEEP DISORDER
  40. GLYBURIDE. [Concomitant]
     Active Substance: GLYBURIDE
     Indication: DIABETES MELLITUS
  41. GUAIVENT [Concomitant]
  42. TIMOLOL. [Concomitant]
     Active Substance: TIMOLOL
  43. GABAPENTIN. [Concomitant]
     Active Substance: GABAPENTIN
  44. ATORVASTATIN [Concomitant]
     Active Substance: ATORVASTATIN
  45. LEVOTHYROXINE. [Concomitant]
     Active Substance: LEVOTHYROXINE
  46. OSELTAMIVIR [Concomitant]
     Active Substance: OSELTAMIVIR
  47. CITALOPRAM [Concomitant]
     Active Substance: CITALOPRAM HYDROBROMIDE
  48. DEXILANT [Suspect]
     Active Substance: DEXLANSOPRAZOLE
     Indication: GASTROOESOPHAGEAL REFLUX DISEASE
     Route: 065
     Dates: start: 2006, end: 2017
  49. CEFDINIR. [Concomitant]
     Active Substance: CEFDINIR

REACTIONS (6)
  - Cardiogenic shock [Fatal]
  - Brain injury [Fatal]
  - End stage renal disease [Unknown]
  - Septic shock [Fatal]
  - Disseminated intravascular coagulation [Fatal]
  - Chronic kidney disease [Unknown]
